FAERS Safety Report 4282824-7 (Version None)
Quarter: 2004Q1

REPORT INFORMATION
  Report Type: 
  Country: None (occurrence: None)
  Receive Date: 20040130
  Receipt Date: 20030429
  Transmission Date: 20041129
  Serious: No
  Sender: FDA-Public Use
  Company Number: US-BRISTOL-MYERS SQUIBB COMPANY-12258992

PATIENT
  Age: 58 Year
  Sex: Male
  Weight: 76 kg

DRUGS (11)
  1. SERZONE [Suspect]
     Indication: POST-TRAUMATIC STRESS DISORDER
     Dosage: STARTED ON 100MG; INCREASED TO + PRESENTLY TAKING 150MG IN A.M. + 400MG IN THE P.M.
     Route: 048
     Dates: start: 20030717
  2. VERAPAMIL [Concomitant]
  3. HYDROCHLOROTHIAZIDE [Concomitant]
  4. PRAZOSIN HCL [Concomitant]
  5. IMIPRAMINE [Concomitant]
  6. POTASSIUM CHLORIDE [Concomitant]
  7. ATIVAN [Concomitant]
  8. TAGAMET [Concomitant]
  9. VICODIN [Concomitant]
  10. METHADONE HCL [Concomitant]
  11. MULTI-VITAMIN [Concomitant]

REACTIONS (1)
  - MYOCLONUS [None]
